FAERS Safety Report 4558216-X (Version None)
Quarter: 2005Q1

REPORT INFORMATION
  Report Type: 
  Country: None (occurrence: None)
  Receive Date: 20050103
  Receipt Date: 20041022
  Transmission Date: 20050727
  Serious: Yes (Other)
  Sender: FDA-Public Use
  Company Number: 2004UW22063

PATIENT
  Sex: Female

DRUGS (3)
  1. CRESTOR [Suspect]
     Dosage: 10 MG PO
     Route: 048
  2. CRESTOR [Suspect]
     Dosage: 20 MG PO
     Route: 048
     Dates: start: 20041001
  3. KETEX [Suspect]

REACTIONS (2)
  - DRUG INTERACTION [None]
  - LOW DENSITY LIPOPROTEIN INCREASED [None]
